FAERS Safety Report 5821907-4 (Version None)
Quarter: 2008Q3

REPORT INFORMATION
  Report Type: 
  Country: None (occurrence: None)
  Receive Date: 20080724
  Receipt Date: 20080717
  Transmission Date: 20090109
  Serious: Yes (Death, Life-Threatening, Hospitalization)
  Sender: FDA-Public Use
  Company Number: FR-ABBOTT-08P-056-0464103-00

PATIENT
  Age: 76 Year
  Sex: Female

DRUGS (5)
  1. VERCYTE [Suspect]
     Indication: POLYCYTHAEMIA VERA
     Route: 048
     Dates: end: 20080422
  2. TERIPARATIDE [Suspect]
     Indication: OSTEOPOROSIS
     Route: 058
     Dates: start: 20080320, end: 20080506
  3. AMLODIPINE MALEATE [Concomitant]
     Indication: HYPERTENSION
     Route: 048
  4. GALENIC /BENAZEPRIL/HYDROCHLOROTHIAZIDE/ [Concomitant]
     Indication: HYPERTENSION
     Route: 048
  5. BISOPROLOL FUMARATE [Concomitant]
     Indication: HYPERTENSION
     Route: 048

REACTIONS (1)
  - POLYCYTHAEMIA VERA [None]
